FAERS Safety Report 16693803 (Version 1)
Quarter: 2019Q3

REPORT INFORMATION
  Report Type: Spontaneous
  Country: JP (occurrence: JP)
  Receive Date: 20190812
  Receipt Date: 20190812
  Transmission Date: 20191004
  Serious: Yes (Disabling, Other)
  Sender: FDA-Public Use
  Company Number: JP-SYNEX-T201905485

PATIENT
  Age: 57 Year
  Sex: Female

DRUGS (3)
  1. INOFLO [Suspect]
     Active Substance: NITRIC OXIDE
     Indication: PULMONARY HYPERTENSION
     Dosage: UNK (INHALATIONAL)
     Route: 055
  2. INOFLO [Suspect]
     Active Substance: NITRIC OXIDE
     Indication: RIGHT VENTRICULAR FAILURE
  3. INOFLO [Suspect]
     Active Substance: NITRIC OXIDE
     Indication: PULMONARY VENO-OCCLUSIVE DISEASE

REACTIONS (1)
  - Pulmonary oedema [Recovered/Resolved]
